FAERS Safety Report 6246219-9 (Version None)
Quarter: 2009Q2

REPORT INFORMATION
  Report Type: 
  Country: None (occurrence: None)
  Receive Date: 20090626
  Receipt Date: 20090616
  Transmission Date: 20091009
  Serious: Yes (Hospitalization)
  Sender: FDA-Public Use
  Company Number: FR-BIOGENIDEC-2009BI018743

PATIENT
  Age: 22 Year
  Sex: Female
  Weight: 57 kg

DRUGS (10)
  1. TYSABRI [Suspect]
     Indication: MULTIPLE SCLEROSIS
     Route: 042
     Dates: start: 20081201
  2. NEXIUM [Concomitant]
     Route: 048
  3. XATRAL [Concomitant]
     Route: 048
     Dates: start: 20080801
  4. MINIRIN [Concomitant]
     Route: 045
     Dates: start: 20081201
  5. FORLAX [Concomitant]
  6. EDUCTYL [Concomitant]
     Dates: start: 20081201
  7. CYMBALTA [Concomitant]
     Dates: start: 20081201
  8. TOPALGIC [Concomitant]
     Route: 048
     Dates: start: 20081201
  9. XANAX [Concomitant]
     Route: 048
     Dates: start: 20081201
  10. CERIS [Concomitant]
     Route: 048
     Dates: start: 20080501

REACTIONS (1)
  - EPILEPSY [None]
